FAERS Safety Report 21713671 (Version 2)
Quarter: 2022Q4

REPORT INFORMATION
  Report Type: Report from Study
  Country: US (occurrence: US)
  Receive Date: 20221212
  Receipt Date: 20221213
  Transmission Date: 20230113
  Serious: No
  Sender: FDA-Public Use
  Company Number: US-ABBVIE-4225181

PATIENT
  Sex: Female

DRUGS (2)
  1. RINVOQ [Suspect]
     Active Substance: UPADACITINIB
     Indication: Ankylosing spondylitis
     Dosage: LAST ADMIN DATE: 2022
     Route: 048
     Dates: start: 20221101
  2. RINVOQ [Suspect]
     Active Substance: UPADACITINIB
     Indication: Ankylosing spondylitis
     Dosage: FIRST ADMIN DATE: 2022?LAST ADMIN DATE:2022
     Route: 048

REACTIONS (8)
  - SARS-CoV-2 test positive [Recovering/Resolving]
  - Oropharyngeal pain [Recovered/Resolved]
  - Cough [Unknown]
  - Illness [Unknown]
  - Throat irritation [Unknown]
  - Headache [Unknown]
  - Pyrexia [Unknown]
  - Back pain [Unknown]

NARRATIVE: CASE EVENT DATE: 20220101
